FAERS Safety Report 5639539-X (Version None)
Quarter: 2008Q1

REPORT INFORMATION
  Report Type: 
  Country: None (occurrence: None)
  Receive Date: 20080226
  Receipt Date: 20080218
  Transmission Date: 20080703
  Serious: Yes (Other)
  Sender: FDA-Public Use
  Company Number: GB-PFIZER INC-2008015752

PATIENT
  Age: 59 Year
  Sex: Female

DRUGS (3)
  1. DETROL LA [Suspect]
     Indication: URGE INCONTINENCE
     Route: 048
     Dates: start: 20071116, end: 20080201
  2. LEVOTHYROXINE SODIUM [Concomitant]
  3. VENLAFAXINE HCL [Concomitant]
     Route: 048
     Dates: start: 20071022, end: 20071128

REACTIONS (1)
  - ERYTHEMA MULTIFORME [None]
